FAERS Safety Report 4387135-7 (Version None)
Quarter: 2004Q2

REPORT INFORMATION
  Report Type: 
  Country: None (occurrence: None)
  Receive Date: 20040629
  Receipt Date: 20040629
  Transmission Date: 20050107
  Serious: Yes (Hospitalization)
  Sender: FDA-Public Use
  Company Number: None

PATIENT
  Age: 82 Year
  Sex: Male

DRUGS (5)
  1. BCG [Suspect]
     Indication: BLADDER CANCER
  2. INTRAVESICAL CHEMO [Concomitant]
  3. ACCUPRIL [Concomitant]
  4. XANAX [Concomitant]
  5. HYDROCODONE [Concomitant]

REACTIONS (1)
  - PYREXIA [None]
